FAERS Safety Report 16991769 (Version 2)
Quarter: 2019Q4

REPORT INFORMATION
  Report Type: Report from Study
  Country: DE (occurrence: DE)
  Receive Date: 20191104
  Receipt Date: 20191121
  Transmission Date: 20200122
  Serious: Yes (Death, Hospitalization, Other)
  Sender: FDA-Public Use
  Company Number: DE-INCYTE CORPORATION-2019IN010665

PATIENT

DRUGS (5)
  1. INCB018424 [Suspect]
     Active Substance: RUXOLITINIB
     Indication: MYELOFIBROSIS
     Dosage: 30 MG, QD
     Route: 048
     Dates: start: 20151209
  2. INCB018424 [Suspect]
     Active Substance: RUXOLITINIB
     Dosage: UNK
     Route: 048
     Dates: start: 20160621
  3. OMEPRAZOLE. [Concomitant]
     Active Substance: OMEPRAZOLE
     Indication: BARRETT^S OESOPHAGUS
     Dosage: 20 MG, PRN
     Route: 065
     Dates: start: 20100121
  4. FRESUBIN JUCY DRINK [Concomitant]
     Indication: WEIGHT DECREASED
     Dosage: UNK
     Route: 065
     Dates: start: 201508
  5. INCB018424 [Suspect]
     Active Substance: RUXOLITINIB
     Dosage: 10 MG, QD
     Route: 048
     Dates: start: 20160312, end: 20160604

REACTIONS (4)
  - Death [Fatal]
  - Inappropriate schedule of product administration [Unknown]
  - Cerebrovascular accident [Not Recovered/Not Resolved]
  - Weight decreased [Unknown]

NARRATIVE: CASE EVENT DATE: 20161213
